FAERS Safety Report 8232372-4 (Version None)
Quarter: 2012Q1

REPORT INFORMATION
  Report Type: 
  Country: None (occurrence: None)
  Receive Date: 20120323
  Receipt Date: 20120315
  Transmission Date: 20120608
  Serious: Yes (Hospitalization)
  Sender: FDA-Public Use
  Company Number: US-GLAXOSMITHKLINE-B0698540A

PATIENT
  Age: 53 Year
  Sex: Male

DRUGS (1)
  1. AVANDIA [Suspect]
     Indication: DIABETES MELLITUS
     Dosage: 8MG PER DAY
     Route: 048
     Dates: start: 20040514, end: 20100126

REACTIONS (7)
  - CARDIOVASCULAR DISORDER [None]
  - CARDIAC DISORDER [None]
  - LEFT VENTRICULAR HYPERTROPHY [None]
  - CORONARY ARTERY DISEASE [None]
  - SINUS BRADYCARDIA [None]
  - DILATATION ATRIAL [None]
  - CARDIAC FAILURE CONGESTIVE [None]
